FAERS Safety Report 8125636-6 (Version None)
Quarter: 2012Q1

REPORT INFORMATION
  Report Type: 
  Country: None (occurrence: None)
  Receive Date: 20120206
  Receipt Date: 20120127
  Transmission Date: 20120608
  Serious: Yes (Other)
  Sender: FDA-Public Use
  Company Number: 1000027376

PATIENT
  Age: 13 Year
  Sex: Female

DRUGS (3)
  1. ESCITALOPRAM OXALATE [Suspect]
     Indication: OBSESSIVE-COMPULSIVE DISORDER
     Dosage: 20 MG (20 MG,1 IN 1 D),ORAL : 15 MG (15 MG,1 IN 1 D),ORAL
     Route: 048
     Dates: start: 20110101, end: 20120112
  2. ESCITALOPRAM OXALATE [Suspect]
     Indication: OBSESSIVE-COMPULSIVE DISORDER
     Dosage: 20 MG (20 MG,1 IN 1 D),ORAL : 15 MG (15 MG,1 IN 1 D),ORAL
     Route: 048
     Dates: start: 20120113
  3. ESCITALOPRAM OXALATE [Suspect]
     Indication: OBSESSIVE-COMPULSIVE DISORDER
     Dosage: 15 MG (15 MG,1 IN 1 D),ORAL
     Route: 048
     Dates: start: 20110101, end: 20110101

REACTIONS (3)
  - SUICIDAL IDEATION [None]
  - TREATMENT NONCOMPLIANCE [None]
  - OFF LABEL USE [None]
